FAERS Safety Report 6294944-6 (Version None)
Quarter: 2009Q3

REPORT INFORMATION
  Report Type: 
  Country: None (occurrence: None)
  Receive Date: 20090731
  Receipt Date: 20090731
  Transmission Date: 20100115
  Serious: Yes (Other)
  Sender: FDA-Public Use
  Company Number: None

PATIENT
  Age: 74 Year
  Sex: Male
  Weight: 99.7913 kg

DRUGS (1)
  1. LYRICA [Suspect]
     Indication: NEUROPATHIC ARTHROPATHY
     Dosage: 125 MG PER DAY PO
     Route: 048
     Dates: start: 20090718, end: 20090724

REACTIONS (3)
  - CONSTIPATION [None]
  - DYSPEPSIA [None]
  - NAUSEA [None]
